FAERS Safety Report 9460530 (Version 2)
Quarter: 2013Q3

REPORT INFORMATION
  Report Type: Spontaneous
  Country: DK (occurrence: DK)
  Receive Date: 20130815
  Receipt Date: 20130829
  Transmission Date: 20140515
  Serious: Yes (Other)
  Sender: FDA-Public Use
  Company Number: DK-WATSON-2013-14547

PATIENT
  Sex: Male

DRUGS (4)
  1. DISULFIRAM (UNKNOWN) [Suspect]
     Indication: PRODUCT USED FOR UNKNOWN INDICATION
     Dosage: UNK
     Route: 065
     Dates: start: 2012
  2. OLANZAPINE (UNKNOWN) [Suspect]
     Indication: PARANOIA
     Dosage: 405 ML, UNK
     Route: 030
     Dates: start: 201209
  3. OLANZAPINE (UNKNOWN) [Suspect]
     Dosage: 305 ML, 2 INTERVAL IN ONE MONTH
     Route: 065
  4. OLANZAPINE (UNKNOWN) [Suspect]
     Dosage: 20 MG, UNKNOWN
     Route: 065

REACTIONS (9)
  - Dyspnoea [Unknown]
  - Hyperhidrosis [Unknown]
  - Feeling hot [Unknown]
  - Presyncope [Unknown]
  - Diabetes mellitus [Unknown]
  - Blood glucose decreased [Unknown]
  - Feeling abnormal [Unknown]
  - Drug interaction [Unknown]
  - Prescribed overdose [Unknown]
